APPROVED DRUG PRODUCT: TRETINOIN
Active Ingredient: TRETINOIN
Strength: 10MG
Dosage Form/Route: CAPSULE;ORAL
Application: A208279 | Product #001 | TE Code: AB
Applicant: GLENMARK PHARMACEUTICALS LTD
Approved: Dec 23, 2016 | RLD: No | RS: No | Type: RX